FAERS Safety Report 14265733 (Version 5)
Quarter: 2018Q3

REPORT INFORMATION
  Report Type: Report from Study
  Country: CO (occurrence: CO)
  Receive Date: 20171208
  Receipt Date: 20180704
  Transmission Date: 20181010
  Serious: Yes (Hospitalization, Other)
  Sender: FDA-Public Use
  Company Number: CO-AMGEN-COLSL2017174712

PATIENT
  Age: 68 Year
  Sex: Female

DRUGS (2)
  1. NPLATE [Suspect]
     Active Substance: ROMIPLOSTIM
     Indication: IMMUNE THROMBOCYTOPENIC PURPURA
     Dosage: 250 MUG, QWK
     Route: 058
     Dates: start: 20171102
  2. NPLATE [Suspect]
     Active Substance: ROMIPLOSTIM
     Dosage: 180 MUG, QWK
     Route: 058

REACTIONS (9)
  - Diarrhoea [Recovered/Resolved]
  - Dizziness [Recovered/Resolved]
  - Thrombocytosis [Recovering/Resolving]
  - Face oedema [Not Recovered/Not Resolved]
  - Vomiting [Recovered/Resolved]
  - Petechiae [Not Recovered/Not Resolved]
  - Swelling face [Recovering/Resolving]
  - Lung infection [Recovered/Resolved]
  - Oedema peripheral [Not Recovered/Not Resolved]

NARRATIVE: CASE EVENT DATE: 201711
